FAERS Safety Report 18484055 (Version 5)
Quarter: 2021Q4

REPORT INFORMATION
  Report Type: Spontaneous
  Country: PL (occurrence: PL)
  Receive Date: 20201110
  Receipt Date: 20211120
  Transmission Date: 20220303
  Serious: Yes (Hospitalization, Other)
  Sender: FDA-Public Use
  Company Number: PL-002147023-NVSC2020PL283542

PATIENT
  Age: 61 Year
  Sex: Male
  Weight: 100 kg

DRUGS (38)
  1. ATORVASTATIN [Suspect]
     Active Substance: ATORVASTATIN
     Indication: Product used for unknown indication
     Dosage: 20 MILLIGRAM, ONCE A DAY
     Route: 065
  2. ATORVASTATIN [Suspect]
     Active Substance: ATORVASTATIN
     Dosage: 20 MILLIGRAM, ONCE A DAY
     Route: 065
     Dates: start: 201808
  3. ATORVASTATIN [Suspect]
     Active Substance: ATORVASTATIN
     Dosage: 20 MILLIGRAM, ONCE A DAY
     Route: 065
     Dates: start: 201809
  4. ATORVASTATIN [Suspect]
     Active Substance: ATORVASTATIN
     Dosage: 20 MILLIGRAM, ONCE A DAY
     Route: 065
     Dates: start: 201707, end: 201910
  5. METOPROLOL [Suspect]
     Active Substance: METOPROLOL
     Indication: Product used for unknown indication
     Dosage: 47.5 MILLIGRAM, ONCE A DAY
     Route: 065
  6. METOPROLOL [Suspect]
     Active Substance: METOPROLOL
     Dosage: 50 MILLIGRAM, ONCE A DAY
     Route: 065
  7. PANTOPRAZOLE [Suspect]
     Active Substance: PANTOPRAZOLE
     Indication: Product used for unknown indication
     Dosage: 20 MILLIGRAM, ONCE A DAY
     Route: 065
  8. RIVAROXABAN [Suspect]
     Active Substance: RIVAROXABAN
     Indication: Product used for unknown indication
     Dosage: 20 MILLIGRAM, ONCE A DAY
     Route: 065
  9. ROSUVASTATIN [Suspect]
     Active Substance: ROSUVASTATIN
     Indication: Product used for unknown indication
     Dosage: 30 MILLIGRAM, ONCE A DAY
     Route: 065
  10. VALSARTAN [Suspect]
     Active Substance: VALSARTAN
     Indication: Product used for unknown indication
     Dosage: 160 MILLIGRAM, ONCE A DAY
     Route: 065
  11. VALSARTAN [Suspect]
     Active Substance: VALSARTAN
     Dosage: 200 MILLIGRAM, TWO TIMES A DAY (400 MG, DAILY, (97/103))
     Route: 065
  12. VALSARTAN [Suspect]
     Active Substance: VALSARTAN
     Dosage: 100 MILLIGRAM, TWO TIMES A DAY (200 MG, DAILY (49/51 MG))
     Route: 065
  13. VALSARTAN [Suspect]
     Active Substance: VALSARTAN
     Dosage: 50 MILLIGRAM, ONCE A DAY (100 MG, DAILY (24/26 MG))
     Route: 065
  14. VALSARTAN [Suspect]
     Active Substance: VALSARTAN
     Dosage: 60 UNK
     Dates: start: 201707
  15. AMIODARONE [Suspect]
     Active Substance: AMIODARONE
     Indication: Product used for unknown indication
     Dosage: 200 MILLIGRAM, ONCE A DAY
     Route: 042
  16. APIXABAN [Suspect]
     Active Substance: APIXABAN
     Indication: Product used for unknown indication
     Dosage: 10 MILLIGRAM, ONCE A DAY
     Route: 065
  17. EPLERENONE [Suspect]
     Active Substance: EPLERENONE
     Indication: Product used for unknown indication
     Dosage: 50 MILLIGRAM, ONCE A DAY (TREATMENT DISCONTINUED)
     Route: 065
  18. EPLERENONE [Suspect]
     Active Substance: EPLERENONE
     Dosage: 50 MILLIGRAM, ONCE A DAY
     Route: 065
  19. SACUBITRIL\VALSARTAN [Suspect]
     Active Substance: SACUBITRIL\VALSARTAN
     Indication: Product used for unknown indication
     Dosage: 100 MILLIGRAM, TWO TIMES A DAY(49/51 MG)
     Route: 065
  20. SACUBITRIL\VALSARTAN [Suspect]
     Active Substance: SACUBITRIL\VALSARTAN
     Dosage: 100 MILLIGRAM, TWO TIMES A DAY  (49/51 MG)
     Route: 065
  21. SACUBITRIL\VALSARTAN [Suspect]
     Active Substance: SACUBITRIL\VALSARTAN
     Dosage: 200 MILLIGRAM, TWO TIMES A DAY  (97/103)
     Route: 065
  22. SACUBITRIL\VALSARTAN [Suspect]
     Active Substance: SACUBITRIL\VALSARTAN
     Dosage: 50 MILLIGRAM, TWO TIMES A DAY  (24/26 MG)
     Route: 065
  23. SACUBITRIL\VALSARTAN [Suspect]
     Active Substance: SACUBITRIL\VALSARTAN
     Dosage: 200 MILLIGRAM, TWO TIMES A DAY  (97/103)
     Route: 065
  24. SACUBITRIL\VALSARTAN [Suspect]
     Active Substance: SACUBITRIL\VALSARTAN
     Dosage: 400 MILLIGRAM, ONCE A DAY
     Route: 065
     Dates: start: 201901
  25. SACUBITRIL\VALSARTAN [Suspect]
     Active Substance: SACUBITRIL\VALSARTAN
     Dosage: 200 MILLIGRAM, ONCE A DAY
     Route: 065
     Dates: start: 201711, end: 201808
  26. SACUBITRIL\VALSARTAN [Suspect]
     Active Substance: SACUBITRIL\VALSARTAN
     Dosage: UNK
     Route: 065
     Dates: start: 201808
  27. SACUBITRIL\VALSARTAN [Suspect]
     Active Substance: SACUBITRIL\VALSARTAN
     Dosage: 400 MILLIGRAM, ONCE A DAY
     Route: 065
     Dates: start: 201712
  28. SACUBITRIL\VALSARTAN [Suspect]
     Active Substance: SACUBITRIL\VALSARTAN
     Dosage: 200 UNK
     Route: 065
     Dates: start: 201809
  29. TORSEMIDE [Suspect]
     Active Substance: TORSEMIDE
     Indication: Product used for unknown indication
     Dosage: UNK UNK, TWO TIMES A DAY UNK UNK, BID (DIURETICS HAS BEEN REDUCED, 10-10-0)
     Route: 065
  30. TORSEMIDE [Suspect]
     Active Substance: TORSEMIDE
     Dosage: 10 MILLIGRAM, TWO TIMES A DAY (20 MILLIGRAM, ONCE A DAY)
     Route: 065
  31. TORSEMIDE [Suspect]
     Active Substance: TORSEMIDE
     Dosage: UNK UNK, TWO TIMES A DAY UNK UNK, (20-10-0)
     Route: 065
  32. TORSEMIDE [Suspect]
     Active Substance: TORSEMIDE
     Dosage: 30 MILLIGRAM, ONCE A DAY
     Route: 065
  33. TORSEMIDE [Suspect]
     Active Substance: TORSEMIDE
     Dosage: UNK UNK, ONCE A DAY
     Route: 065
     Dates: start: 201808
  34. TORSEMIDE [Suspect]
     Active Substance: TORSEMIDE
     Dosage: 20 MILLIGRAM, ONCE A DAY
     Route: 065
     Dates: start: 201707
  35. WARFARIN [Suspect]
     Active Substance: WARFARIN
     Indication: Product used for unknown indication
     Dosage: UNK (AS PER INR)
     Route: 065
  36. POTASSIUM [Concomitant]
     Active Substance: POTASSIUM
     Indication: Product used for unknown indication
     Dosage: UNK
     Route: 065
     Dates: start: 201808
  37. PANTOPRAZOLE SODIUM [Suspect]
     Active Substance: PANTOPRAZOLE SODIUM
     Indication: Product used for unknown indication
     Dosage: 20 MILLIGRAM, ONCE A DAY
     Route: 065
     Dates: start: 201707
  38. PANTOPRAZOLE SODIUM [Suspect]
     Active Substance: PANTOPRAZOLE SODIUM
     Dosage: 20 UNK
     Route: 065
     Dates: start: 201809

REACTIONS (15)
  - Atrial fibrillation [Unknown]
  - Cardiac failure congestive [Recovering/Resolving]
  - Aortic valve incompetence [Unknown]
  - Blood creatinine increased [Unknown]
  - Glomerular filtration rate decreased [Unknown]
  - Oedema peripheral [Recovered/Resolved]
  - Weight increased [Unknown]
  - Heart rate increased [Recovered/Resolved]
  - Diarrhoea [Recovered/Resolved]
  - Blood cholesterol increased [Unknown]
  - Blood cholesterol abnormal [Unknown]
  - Contraindicated product administered [Unknown]
  - Inappropriate schedule of product administration [Unknown]
  - Off label use [Unknown]
  - Product dose omission issue [Unknown]

NARRATIVE: CASE EVENT DATE: 20170701
